FAERS Safety Report 7770073-7 (Version None)
Quarter: 2011Q3

REPORT INFORMATION
  Report Type: 
  Country: None (occurrence: None)
  Receive Date: 20110922
  Receipt Date: 20110208
  Transmission Date: 20111222
  Serious: Yes (Other)
  Sender: FDA-Public Use
  Company Number: US-ASTRAZENECA-2011SE02307

PATIENT
  Age: 56 Year
  Sex: Female
  Weight: 65.8 kg

DRUGS (5)
  1. KLONOPIN [Concomitant]
     Indication: ANXIETY
     Dosage: 25 MG DAILY AS REQUIRED
     Route: 048
     Dates: start: 20100913, end: 20110102
  2. SEROQUEL [Suspect]
     Route: 048
     Dates: start: 20080609, end: 20080729
  3. SEROQUEL [Suspect]
     Route: 048
     Dates: start: 20101013, end: 20101228
  4. PRISTIQ [Concomitant]
     Indication: DEPRESSION
     Route: 048
     Dates: start: 20100913, end: 20110102
  5. SEROQUEL [Suspect]
     Indication: DEPRESSION
     Route: 048
     Dates: start: 20080101

REACTIONS (1)
  - GRAND MAL CONVULSION [None]
